FAERS Safety Report 8367984-0 (Version None)
Quarter: 2012Q2

REPORT INFORMATION
  Report Type: 
  Country: None (occurrence: None)
  Receive Date: 20120517
  Receipt Date: 20120506
  Transmission Date: 20120825
  Serious: Yes (Hospitalization)
  Sender: FDA-Public Use
  Company Number: IT-TEVA-337673ISR

PATIENT
  Sex: Male

DRUGS (1)
  1. KETOPROFEN [Suspect]
     Route: 048
     Dates: start: 20120503, end: 20120503

REACTIONS (3)
  - PRESYNCOPE [None]
  - ERYTHEMA [None]
  - PRURITUS [None]
